FAERS Safety Report 5399418-2 (Version None)
Quarter: 2007Q3

REPORT INFORMATION
  Report Type: 
  Country: None (occurrence: None)
  Receive Date: 20070727
  Receipt Date: 20070719
  Transmission Date: 20080115
  Serious: Yes (Other)
  Sender: FDA-Public Use
  Company Number: US-JNJFOC-20060903695

PATIENT
  Sex: Female
  Weight: 57.8 kg

DRUGS (1)
  1. ORTHO EVRA [Suspect]
     Indication: DRUG USE FOR UNKNOWN INDICATION
     Route: 062

REACTIONS (6)
  - ASTHMA [None]
  - ATELECTASIS [None]
  - INJURY [None]
  - PNEUMONIA [None]
  - RASH [None]
  - WEIGHT INCREASED [None]
